FAERS Safety Report 4796091-9 (Version None)
Quarter: 2005Q3

REPORT INFORMATION
  Report Type: 
  Country: None (occurrence: None)
  Receive Date: 20050916
  Receipt Date: 20050719
  Transmission Date: 20060218
  Serious: Yes (Hospitalization)
  Sender: FDA-Public Use
  Company Number: US-JNJFOC-20050704380

PATIENT
  Sex: Female
  Weight: 78.9259 kg

DRUGS (1)
  1. ORTHO EVRA [Suspect]
     Indication: CONTRACEPTION
     Dosage: 1 DOSE(S) 3 IN 4 WEEK(S) TRANSDERMAL
     Route: 062
     Dates: start: 20041001, end: 20050701

REACTIONS (1)
  - PULMONARY EMBOLISM [None]
